FAERS Safety Report 8986151 (Version 1)
Quarter: 2012Q4

REPORT INFORMATION
  Report Type: Spontaneous
  Country: US (occurrence: None)
  Receive Date: 20121219
  Receipt Date: 20121219
  Transmission Date: 20130627
  Serious: No
  Sender: FDA-Public Use
  Company Number: None

PATIENT
  Age: 57 Year
  Sex: Male
  Weight: 76.8 kg

DRUGS (1)
  1. VARENICLINE [Suspect]
     Indication: SMOKING CESSATION THERAPY
     Dosage: 1 MG BID  PO
     Route: 048
     Dates: start: 20120928, end: 20121026

REACTIONS (4)
  - Cough [None]
  - Wheezing [None]
  - Anxiety [None]
  - Dyspnoea [None]
